FAERS Safety Report 8574132-0 (Version None)
Quarter: 2012Q3

REPORT INFORMATION
  Report Type: 
  Country: None (occurrence: None)
  Receive Date: 20120806
  Receipt Date: 20120803
  Transmission Date: 20120928
  Serious: Yes (Death)
  Sender: FDA-Public Use
  Company Number: PHHY2012JP067159

PATIENT
  Sex: Male

DRUGS (2)
  1. RADIOTHERAPY [Suspect]
     Indication: ADRENAL MASS
  2. VINORELBINE [Suspect]
     Indication: ADRENAL MASS
     Dosage: 25 MG/M2, UNK

REACTIONS (7)
  - GASTRIC ULCER [None]
  - ABDOMINAL PAIN UPPER [None]
  - GASTRIC PERFORATION [None]
  - PERITONITIS [None]
  - GASTROINTESTINAL NECROSIS [None]
  - GASTRIC ULCER HAEMORRHAGE [None]
  - ANAL HAEMORRHAGE [None]
